FAERS Safety Report 8545639-7 (Version None)
Quarter: 2012Q3

REPORT INFORMATION
  Report Type: 
  Country: None (occurrence: None)
  Receive Date: 20120718
  Receipt Date: 20120718
  Transmission Date: 20120928
  Serious: No
  Sender: FDA-Public Use
  Company Number: None

PATIENT
  Age: 29 Year
  Sex: Female
  Weight: 138.3471 kg

DRUGS (2)
  1. ESCITALOPRAM [Suspect]
     Indication: ANXIETY
     Dates: start: 20120301, end: 20120601
  2. ESCITALOPRAM [Suspect]
     Indication: DEPRESSION
     Dates: start: 20120301, end: 20120601

REACTIONS (3)
  - PRODUCT SUBSTITUTION ISSUE [None]
  - TREMOR [None]
  - DRUG INEFFECTIVE [None]
